FAERS Safety Report 7827375-5 (Version None)
Quarter: 2011Q4

REPORT INFORMATION
  Report Type: 
  Country: None (occurrence: None)
  Receive Date: 20111020
  Receipt Date: 20111014
  Transmission Date: 20120403
  Serious: Yes (Other)
  Sender: FDA-Public Use
  Company Number: GB-BRISTOL-MYERS SQUIBB COMPANY-15490907

PATIENT
  Age: 17 Year
  Sex: Female

DRUGS (1)
  1. ABILIFY [Suspect]
     Indication: BIPOLAR DISORDER
     Dosage: INITIAL DOSE-2.5MG ONCE DAILY FROM 24NOV2010 FOR 1 WK,INCREASED TO 5MG ONCE DAILY.
     Dates: start: 20101124

REACTIONS (6)
  - MECONIUM STAIN [None]
  - PREGNANCY [None]
  - BETA HAEMOLYTIC STREPTOCOCCAL INFECTION [None]
  - LIVE BIRTH [None]
  - MATERNAL DRUGS AFFECTING FOETUS [None]
  - SHOULDER DYSTOCIA [None]
